FAERS Safety Report 25086468 (Version 4)
Quarter: 2025Q3

REPORT INFORMATION
  Report Type: Report from Study
  Country: AR (occurrence: AR)
  Receive Date: 20250317
  Receipt Date: 20250708
  Transmission Date: 20251020
  Serious: Yes (Death, Life-Threatening, Hospitalization, Other)
  Sender: NOVARTIS
  Company Number: AR-002147023-NVSC2025AR019096

PATIENT
  Sex: Female

DRUGS (9)
  1. KISQALI [Suspect]
     Active Substance: RIBOCICLIB SUCCINATE
     Indication: Breast cancer metastatic
     Route: 065
     Dates: start: 20231006
  2. KISQALI [Suspect]
     Active Substance: RIBOCICLIB SUCCINATE
     Route: 065
     Dates: start: 2023, end: 20231011
  3. KISQALI [Suspect]
     Active Substance: RIBOCICLIB SUCCINATE
     Dosage: 600 MG (3 OF 200 MG), QD,  FOR 21 DAYS AND THEN 7 DAYS OF REST.
     Route: 065
     Dates: start: 20231201
  4. LETROZOLE [Suspect]
     Active Substance: LETROZOLE
     Indication: Breast cancer metastatic
     Route: 065
     Dates: start: 20231006
  5. LETROZOLE [Suspect]
     Active Substance: LETROZOLE
     Route: 065
     Dates: start: 2023, end: 20231011
  6. LETROZOLE [Suspect]
     Active Substance: LETROZOLE
     Dosage: 2.5 MG, QD WITHOUT REST
     Route: 065
     Dates: start: 20231201
  7. ZOLEDRONIC ACID [Suspect]
     Active Substance: ZOLEDRONIC ACID
     Indication: Product used for unknown indication
     Dosage: 4 MG, Q3MO
     Route: 065
     Dates: start: 20230929
  8. LEUPROLIDE [Concomitant]
     Active Substance: LEUPROLIDE
     Indication: Product used for unknown indication
     Dosage: UNK, Q3MO (22.5, EVERY 3 MONTHS)
     Route: 065
     Dates: start: 20230929
  9. Anemidox [Concomitant]
     Indication: Product used for unknown indication
     Dosage: 1 DOSAGE FORM (CAPSULE), QD
     Route: 065
     Dates: start: 202312

REACTIONS (14)
  - Breast cancer metastatic [Fatal]
  - Malignant neoplasm progression [Fatal]
  - Platelet count decreased [Unknown]
  - Pleural effusion [Unknown]
  - Pneumonia [Unknown]
  - Pulmonary mass [Unknown]
  - Anaemia [Unknown]
  - Haematocrit abnormal [Unknown]
  - Haemoglobin abnormal [Unknown]
  - Tumour marker abnormal [Unknown]
  - Haematotoxicity [Recovered/Resolved]
  - Therapy non-responder [Unknown]
  - Bone marrow disorder [Unknown]
  - Red blood cell count decreased [Unknown]

NARRATIVE: CASE EVENT DATE: 20230101
